FAERS Safety Report 11252870 (Version 2)
Quarter: 2019Q3

REPORT INFORMATION
  Report Type: Report from Study
  Country: DE (occurrence: DE)
  Receive Date: 20150708
  Receipt Date: 20190710
  Transmission Date: 20191004
  Serious: Yes (Hospitalization)
  Sender: FDA-Public Use
  Company Number: DE-GILEAD-2015-0162326

PATIENT
  Age: 59 Year
  Sex: Female
  Weight: 68 kg

DRUGS (9)
  1. ZOPLICONE [Concomitant]
     Active Substance: ZOPICLONE
     Indication: PRODUCT USED FOR UNKNOWN INDICATION
     Dosage: 7.5 MG, QD
     Route: 065
     Dates: end: 20150410
  2. ACC                                /00082801/ [Concomitant]
     Active Substance: ACETYLCYSTEINE
     Indication: PRODUCT USED FOR UNKNOWN INDICATION
     Dosage: 600 MG, QD
     Route: 065
     Dates: start: 20150411
  3. AMBROXOL [Concomitant]
     Active Substance: AMBROXOL
     Indication: PRODUCT USED FOR UNKNOWN INDICATION
     Dosage: 5 MG, QID
     Route: 065
     Dates: start: 20150411
  4. OLANZAPIN [Concomitant]
     Active Substance: OLANZAPINE
     Indication: PRODUCT USED FOR UNKNOWN INDICATION
     Dosage: 2.5 MG, BID
     Route: 065
     Dates: end: 20150410
  5. ABILIFY [Concomitant]
     Active Substance: ARIPIPRAZOLE
     Indication: PRODUCT USED FOR UNKNOWN INDICATION
     Dosage: 30 MG, QD
     Route: 065
     Dates: end: 20150410
  6. SOFOSBUVIR [Suspect]
     Active Substance: SOFOSBUVIR
     Indication: CHRONIC HEPATITIS C
     Dosage: 400 MG, QD
     Route: 048
     Dates: start: 20150305, end: 20150528
  7. DACLATASVIR DIHYDROCHLORIDE [Suspect]
     Active Substance: DACLATASVIR DIHYDROCHLORIDE
     Indication: CHRONIC HEPATITIS C
     Dosage: 60 MG, QD
     Route: 048
     Dates: start: 20150305, end: 20150528
  8. OLANZAPIN [Concomitant]
     Active Substance: OLANZAPINE
     Dosage: 10 MG, QD
     Route: 065
     Dates: start: 20150411
  9. ARIPIPRAZOL [Concomitant]
     Active Substance: ARIPIPRAZOLE
     Indication: PRODUCT USED FOR UNKNOWN INDICATION
     Dosage: 30 MG, QD
     Route: 065
     Dates: start: 20150411

REACTIONS (2)
  - Depression [Recovered/Resolved]
  - Sleep disorder [Recovering/Resolving]

NARRATIVE: CASE EVENT DATE: 20150410
